FAERS Safety Report 20142051 (Version 1)
Quarter: 2021Q4

REPORT INFORMATION
  Report Type: Spontaneous
  Country: AT (occurrence: AT)
  Receive Date: 20211202
  Receipt Date: 20211202
  Transmission Date: 20220303
  Serious: Yes (Hospitalization, Other)
  Sender: FDA-Public Use
  Company Number: AT-BoehringerIngelheim-2021-BI-138262

PATIENT
  Age: 81 Year
  Sex: Male

DRUGS (8)
  1. PRADAXA [Suspect]
     Active Substance: DABIGATRAN ETEXILATE MESYLATE
     Indication: Atrial fibrillation
     Dosage: 1-0-1
  2. DILTIAZEM [Concomitant]
     Active Substance: DILTIAZEM
     Indication: Product used for unknown indication
     Dosage: 1-0-1
  3. SIMVASTATIN [Concomitant]
     Active Substance: SIMVASTATIN
     Indication: Product used for unknown indication
     Dosage: 0-0-1
  4. AMIODARONE [Concomitant]
     Active Substance: AMIODARONE
     Indication: Product used for unknown indication
     Dosage: 1-0-0
  5. ZOLPIDEM TARTRATE [Concomitant]
     Active Substance: ZOLPIDEM TARTRATE
     Indication: Product used for unknown indication
     Dosage: 0-0-1/2
  6. DEXIBUPROFEN [Concomitant]
     Active Substance: DEXIBUPROFEN
     Indication: Product used for unknown indication
     Dosage: 1 TABLET IF NEEDED
  7. AMLODIPINE\VALSARTAN [Concomitant]
     Active Substance: AMLODIPINE\VALSARTAN
     Indication: Product used for unknown indication
     Dosage: 160/5 MG?1 ? 0 ? 0
  8. JARDIANCE [Suspect]
     Active Substance: EMPAGLIFLOZIN
     Indication: Product used for unknown indication
     Dosage: 110 MG
     Route: 065

REACTIONS (14)
  - Abdominal pain [Unknown]
  - Pyrexia [Unknown]
  - Appendicitis [Unknown]
  - Food interaction [Unknown]
  - Epistaxis [Unknown]
  - Renal impairment [Unknown]
  - Large intestinal obstruction [Unknown]
  - Gastrointestinal wall thickening [Unknown]
  - Diverticulum [Unknown]
  - X-ray with contrast upper gastrointestinal tract [Unknown]
  - Liver disorder [Unknown]
  - Kidney enlargement [Unknown]
  - Renal atrophy [Unknown]
  - Prostatomegaly [Unknown]
